FAERS Safety Report 7759903-2 (Version None)
Quarter: 2011Q3

REPORT INFORMATION
  Report Type: 
  Country: None (occurrence: None)
  Receive Date: 20110919
  Receipt Date: 20110914
  Transmission Date: 20111222
  Serious: Yes (Death, Hospitalization)
  Sender: FDA-Public Use
  Company Number: FR-MERCK-1109FRA00055

PATIENT
  Age: 91 Year
  Sex: Female

DRUGS (10)
  1. NOROXIN [Suspect]
     Indication: URINARY TRACT INFECTION
     Route: 048
     Dates: start: 20110816, end: 20110821
  2. CELIPROLOL HYDROCHLORIDE [Concomitant]
     Route: 065
     Dates: start: 20110301, end: 20110301
  3. FOSFOMYCIN TROMETHAMINE [Concomitant]
     Route: 065
     Dates: start: 20110301, end: 20110301
  4. ASPIRIN LYSINE [Concomitant]
     Route: 065
     Dates: start: 20110301, end: 20110301
  5. ALPRAZOLAM [Concomitant]
     Route: 065
     Dates: start: 20110301, end: 20110301
  6. SPIRONOLACTONE [Concomitant]
     Route: 065
     Dates: start: 20110301, end: 20110301
  7. IBUPROFEN [Suspect]
     Indication: PAIN
     Route: 061
     Dates: start: 20110816
  8. ACETAMINOPHEN [Concomitant]
     Route: 065
     Dates: start: 20110301, end: 20110301
  9. CORTIVAZOL [Concomitant]
     Route: 065
     Dates: start: 20110301, end: 20110301
  10. MIANSERIN HYDROCHLORIDE [Concomitant]
     Route: 065
     Dates: start: 20110301, end: 20110301

REACTIONS (1)
  - FEBRILE BONE MARROW APLASIA [None]
